FAERS Safety Report 5380387-6 (Version None)
Quarter: 2007Q3

REPORT INFORMATION
  Report Type: 
  Country: None (occurrence: None)
  Receive Date: 20070706
  Receipt Date: 20070523
  Transmission Date: 20080115
  Serious: No
  Sender: FDA-Public Use
  Company Number: A0652656A

PATIENT
  Age: 60 Year
  Sex: Female

DRUGS (8)
  1. TYKERB [Suspect]
     Indication: BREAST CANCER
     Dosage: 5TAB PER DAY
     Route: 048
     Dates: start: 20070420
  2. TYLENOL [Concomitant]
  3. RITALIN [Concomitant]
  4. SUDAFED 12 HOUR [Concomitant]
  5. MULTI-VITAMIN [Concomitant]
  6. VITAMIN B50 [Concomitant]
  7. CALCIUM CHLORIDE [Concomitant]
  8. MELATONIN [Concomitant]

REACTIONS (5)
  - ASTHENIA [None]
  - DIZZINESS [None]
  - HEADACHE [None]
  - NAUSEA [None]
  - SENSORY DISTURBANCE [None]
